FAERS Safety Report 7495812-4 (Version None)
Quarter: 2011Q2

REPORT INFORMATION
  Report Type: 
  Country: None (occurrence: None)
  Receive Date: 20110523
  Receipt Date: 20110516
  Transmission Date: 20111010
  Serious: Yes (Death)
  Sender: FDA-Public Use
  Company Number: US-AMGEN-USASP2011022921

PATIENT
  Sex: Female

DRUGS (2)
  1. NPLATE [Suspect]
     Indication: IDIOPATHIC THROMBOCYTOPENIC PURPURA
     Dosage: 110 A?G, UNK
     Dates: start: 20101221, end: 20101221
  2. CORTICOSTEROIDS [Concomitant]

REACTIONS (2)
  - PULMONARY EMBOLISM [None]
  - LUNG NEOPLASM MALIGNANT [None]
